FAERS Safety Report 7522064-9 (Version None)
Quarter: 2011Q2

REPORT INFORMATION
  Report Type: 
  Country: None (occurrence: None)
  Receive Date: 20110603
  Receipt Date: 20110525
  Transmission Date: 20111010
  Serious: Yes (Hospitalization)
  Sender: FDA-Public Use
  Company Number: TW-SANOFI-AVENTIS-2011SA025594

PATIENT
  Age: 65 Year
  Sex: Female
  Weight: 44.9 kg

DRUGS (10)
  1. DOCETAXEL [Suspect]
     Route: 041
     Dates: start: 20110208, end: 20110208
  2. TRASTUZUMAB [Suspect]
     Indication: BREAST CANCER
     Route: 042
     Dates: start: 20110301, end: 20110301
  3. DEXAMETHASONE [Concomitant]
     Indication: PREMEDICATION
     Route: 048
     Dates: start: 20110228, end: 20110303
  4. EPIRUBICIN [Suspect]
     Indication: BREAST CANCER
     Route: 042
     Dates: start: 20100807, end: 20101025
  5. DOCETAXEL [Suspect]
     Indication: BREAST CANCER
     Route: 041
     Dates: start: 20110110, end: 20110110
  6. TRASTUZUMAB [Suspect]
     Route: 042
     Dates: start: 20110208, end: 20110208
  7. FLUOROURACIL [Suspect]
     Indication: BREAST CANCER
     Route: 042
     Dates: start: 20100807, end: 20101025
  8. METOCLOPRAMIDE [Concomitant]
     Indication: PROPHYLAXIS
     Route: 042
     Dates: start: 20110301, end: 20110301
  9. DOCETAXEL [Suspect]
     Route: 041
     Dates: start: 20110301, end: 20110301
  10. CYCLOPHOSPHAMIDE [Suspect]
     Indication: BREAST CANCER
     Route: 042
     Dates: start: 20100808, end: 20101025

REACTIONS (2)
  - PNEUMONIA [None]
  - HYPOGLYCAEMIA [None]
